FAERS Safety Report 21990224 (Version 1)
Quarter: 2023Q1

REPORT INFORMATION
  Report Type: Spontaneous
  Country: US (occurrence: US)
  Receive Date: 20230214
  Receipt Date: 20230214
  Transmission Date: 20230418
  Serious: No
  Sender: FDA-Public Use
  Company Number: US-PFIZER INC-202300063817

PATIENT
  Age: 70 Year
  Sex: Female
  Weight: 64.853 kg

DRUGS (5)
  1. PAXLOVID [Suspect]
     Active Substance: NIRMATRELVIR\RITONAVIR
     Indication: COVID-19 treatment
     Dosage: [PF-07321332 300 MG]/[RITONAVIR 100 MG], 2X/DAY
     Dates: start: 20230209
  2. VITAMIN C [Concomitant]
     Active Substance: ASCORBIC ACID
     Dosage: 1000 MG
  3. ZINC [Concomitant]
     Active Substance: ZINC
     Dosage: 50 MG
  4. VITAMIN D NOS [Concomitant]
     Active Substance: VITAMIN D NOS
     Dosage: 4000 IU
  5. LEVOTHYROXINE [Concomitant]
     Active Substance: LEVOTHYROXINE
     Indication: Thyroidectomy
     Dosage: UNK
     Dates: start: 2013

REACTIONS (6)
  - Feeling abnormal [Unknown]
  - Taste disorder [Unknown]
  - Feeling of body temperature change [Unknown]
  - Nausea [Unknown]
  - Dry mouth [Unknown]
  - Somnolence [Unknown]
